FAERS Safety Report 5250771-X (Version None)
Quarter: 2007Q1

REPORT INFORMATION
  Report Type: 
  Country: None (occurrence: None)
  Receive Date: 20070228
  Receipt Date: 20070215
  Transmission Date: 20070707
  Serious: Yes (Other)
  Sender: FDA-Public Use
  Company Number: AU-ELI_LILLY_AND_COMPANY-AU200612001194

PATIENT
  Sex: Female
  Weight: 2.49 kg

DRUGS (6)
  1. FLUOXETINE HCL [Suspect]
     Dosage: UNK, UNK
     Route: 064
  2. PHENERGAN HCL [Concomitant]
     Route: 064
  3. ZOLPIDEM TARTRATE [Concomitant]
     Route: 064
  4. EDRONAX [Concomitant]
     Route: 064
  5. NITRIC OXIDE [Concomitant]
     Route: 064
  6. INSULIN [Concomitant]
     Route: 064

REACTIONS (5)
  - DRUG EXPOSURE DURING PREGNANCY [None]
  - DRUG EXPOSURE VIA BREAST MILK [None]
  - FOETAL GROWTH RETARDATION [None]
  - REFLEXES ABNORMAL [None]
  - SMALL FOR DATES BABY [None]
